FAERS Safety Report 9306995 (Version 1)
Quarter: 2013Q2

REPORT INFORMATION
  Report Type: Spontaneous
  Country: US (occurrence: US)
  Receive Date: 20130523
  Receipt Date: 20130523
  Transmission Date: 20140414
  Serious: No
  Sender: FDA-Public Use
  Company Number: US-009507513-1305USA010258

PATIENT
  Age: 60 Year
  Sex: Female

DRUGS (1)
  1. ASMANEX TWISTHALER [Suspect]
     Indication: PULMONARY SARCOIDOSIS
     Dosage: 2 DF, 2 PUFF PER DAY
     Route: 055
     Dates: start: 201108

REACTIONS (2)
  - Cough [Unknown]
  - Incorrect drug administration duration [Unknown]
